FAERS Safety Report 8987733 (Version 1)
Quarter: 2012Q4

REPORT INFORMATION
  Report Type: 
  Country: DE (occurrence: DE)
  Receive Date: 20121227
  Receipt Date: 20121227
  Transmission Date: 20130627
  Serious: Yes (Death)
  Sender: FDA-Public Use
  Company Number: GXKR2012DE003932

PATIENT
  Age: 23 Year
  Sex: Female

DRUGS (2)
  1. CIPROFLOXACIN [Suspect]
     Route: 065
  2. TIGECYCLINE [Suspect]
     Route: 065

REACTIONS (2)
  - Coma hepatic [Fatal]
  - Multi-organ failure [Fatal]
